FAERS Safety Report 9406307 (Version 1)
Quarter: 2013Q3

REPORT INFORMATION
  Report Type: Spontaneous
  Country: IT (occurrence: IT)
  Receive Date: 20130717
  Receipt Date: 20130717
  Transmission Date: 20140515
  Serious: No
  Sender: FDA-Public Use
  Company Number: IT-009507513-1307ITA007864

PATIENT
  Age: 57 Year
  Sex: Female

DRUGS (1)
  1. SYCREST [Suspect]
     Indication: MOOD ALTERED
     Dosage: 5 MG, QD
     Route: 060
     Dates: start: 20120118, end: 201202

REACTIONS (3)
  - Vertigo [Recovered/Resolved]
  - Hypotension [Recovered/Resolved]
  - Off label use [Unknown]
